FAERS Safety Report 5983416-1 (Version None)
Quarter: 2008Q4

REPORT INFORMATION
  Report Type: 
  Country: None (occurrence: None)
  Receive Date: 20081208
  Receipt Date: 20081201
  Transmission Date: 20090506
  Serious: Yes (Hospitalization)
  Sender: FDA-Public Use
  Company Number: DE-BAYER-200610775BVD

PATIENT
  Age: 59 Year
  Sex: Female
  Weight: 74 kg

DRUGS (5)
  1. SORAFENIB [Suspect]
     Indication: RENAL CELL CARCINOMA
     Dosage: TOTAL DAILY DOSE: 400 MG
     Route: 048
     Dates: start: 20060607, end: 20060617
  2. BISOHEXAL [Concomitant]
     Route: 048
  3. ASTONIN H [Concomitant]
     Route: 048
  4. HYDROCORTISONE [Concomitant]
  5. LEVOTHYROXINE SODIUM [Concomitant]
     Route: 048

REACTIONS (1)
  - HYPOCALCAEMIA [None]
